FAERS Safety Report 11337239 (Version 2)
Quarter: 2015Q4

REPORT INFORMATION
  Report Type: Spontaneous
  Country: US (occurrence: US)
  Receive Date: 20150804
  Receipt Date: 20151020
  Transmission Date: 20160304
  Serious: No
  Sender: FDA-Public Use
  Company Number: US-009507513-1507USA009462

PATIENT
  Age: 26 Year
  Sex: Female
  Weight: 82.99 kg

DRUGS (1)
  1. NEXPLANON [Suspect]
     Active Substance: ETONOGESTREL
     Indication: CONTRACEPTION
     Dosage: 1 ROD/ONCE EVERY THREE YEARS
     Route: 059
     Dates: start: 20150622, end: 20150715

REACTIONS (2)
  - Soft tissue disorder [Recovered/Resolved]
  - Tinea infection [Recovered/Resolved]

NARRATIVE: CASE EVENT DATE: 20150706
